FAERS Safety Report 9324150 (Version 6)
Quarter: 2014Q2

REPORT INFORMATION
  Report Type: Report from Study
  Country: IT (occurrence: IT)
  Receive Date: 20130603
  Receipt Date: 20140602
  Transmission Date: 20141212
  Serious: Yes (Hospitalization)
  Sender: FDA-Public Use
  Company Number: IT-MERCK-1305ITA015571

PATIENT
  Age: 66 Year
  Sex: Male
  Weight: 63 kg

DRUGS (9)
  1. PEGINTERFERON ALFA-2B [Suspect]
     Indication: HEPATITIS C
     Dosage: 108 MICROGRAM, QW, PEN
     Route: 058
     Dates: start: 20130408, end: 2013
  2. PEGINTERFERON ALFA-2B [Suspect]
     Indication: HEPATIC CIRRHOSIS
     Dosage: 96 MICROGRAM, QW, FORMULATION: PEN
     Route: 058
     Dates: start: 2013
  3. RIBAVIRIN [Suspect]
     Indication: HEPATITIS C
     Dosage: DOSE 1000 MG PER DAY
     Route: 048
     Dates: start: 20130408, end: 2013
  4. RIBAVIRIN [Suspect]
     Indication: HEPATIC CIRRHOSIS
     Dosage: 600 MG, QD
     Route: 048
     Dates: start: 2013
  5. BOCEPREVIR [Suspect]
     Indication: HEPATITIS C
     Dosage: 2400 MG PER DAY
     Route: 048
     Dates: start: 20130508
  6. BOCEPREVIR [Suspect]
     Indication: HEPATIC CIRRHOSIS
  7. RAMIPRIL [Concomitant]
     Indication: HYPERTENSION
     Dosage: 5 MG, QD
     Route: 048
     Dates: start: 2010
  8. INSULIN GLARGINE [Concomitant]
     Indication: DIABETES MELLITUS
     Dosage: UNK, TID
     Route: 058
     Dates: start: 2000
  9. CARDIOASPIRIN [Concomitant]
     Indication: THROMBOSIS PROPHYLAXIS
     Dosage: 100 MG, QD
     Route: 048
     Dates: start: 2000

REACTIONS (2)
  - Chest pain [Recovered/Resolved]
  - Dyspnoea [Recovered/Resolved]
